FAERS Safety Report 8618696 (Version 4)
Quarter: 2013Q3

REPORT INFORMATION
  Report Type: Spontaneous
  Country: US (occurrence: US)
  Receive Date: 20120618
  Receipt Date: 20130916
  Transmission Date: 20140515
  Serious: No
  Sender: FDA-Public Use
  Company Number: US-PFIZER INC-2012142486

PATIENT
  Age: 68 Year
  Sex: Male
  Weight: 82.09 kg

DRUGS (14)
  1. SUTENT [Suspect]
     Indication: METASTATIC RENAL CELL CARCINOMA
     Dosage: 50 MG, FOR 42  DAY CYCLES
     Route: 048
     Dates: start: 20110103, end: 20111218
  2. SUTENT [Suspect]
     Dosage: 50 MG, CYCLIC (EVERY THREE DAYS OUT OF FOUR DAYS)
     Dates: end: 20120514
  3. SUTENT [Suspect]
     Dosage: 50 MG, CYCLIC
     Dates: start: 20120614
  4. SUTENT [Suspect]
     Dosage: 50 MG, CYCLIC (EVERY OTHER DAY FOR 28 DAYS AND THEN 2 WEEKS OFF)
  5. PANTOPRAZOLE [Concomitant]
     Dosage: 40 MG, DAILY
  6. CALCITRIOL [Concomitant]
     Dosage: UNK
  7. LEVOTHYROXINE [Concomitant]
     Dosage: UNK
  8. AMLODIPINE [Concomitant]
     Dosage: 5 MG, UNK
  9. LISINOPRIL [Concomitant]
     Dosage: 10 MG, UNK
  10. IL2 [Concomitant]
     Indication: ATRIAL FIBRILLATION
     Dosage: UNK
  11. HYDROCHLOROTHIAZIDE [Concomitant]
     Dosage: UNK
  12. HYDROCORT [Concomitant]
     Dosage: 20 MG, Q AM/ ONE HALF TAB IN PM
  13. CARVEDILOL [Concomitant]
     Dosage: 3.125 MG, BID
  14. FLUDROCORTISONE [Concomitant]
     Dosage: UNK

REACTIONS (4)
  - White blood cell count decreased [Unknown]
  - Palmar-plantar erythrodysaesthesia syndrome [Recovering/Resolving]
  - Dehydration [Unknown]
  - Blood creatinine increased [Recovered/Resolved]
